FAERS Safety Report 8503861-X (Version None)
Quarter: 2012Q3

REPORT INFORMATION
  Report Type: 
  Country: None (occurrence: None)
  Receive Date: 20120711
  Receipt Date: 20120629
  Transmission Date: 20120928
  Serious: Yes (Hospitalization, Other)
  Sender: FDA-Public Use
  Company Number: GB-BRISTOL-MYERS SQUIBB COMPANY-16706749

PATIENT
  Age: 54 Year
  Sex: Female

DRUGS (6)
  1. ORAMORPH SR [Concomitant]
     Indication: BACK PAIN
     Route: 048
     Dates: start: 20111010
  2. LORAZEPAM [Concomitant]
     Route: 048
  3. SPRYCEL [Suspect]
     Indication: CHRONIC MYELOID LEUKAEMIA
     Route: 048
     Dates: start: 20110414, end: 20120627
  4. MORPHINE [Concomitant]
     Indication: BACK PAIN
     Route: 048
     Dates: start: 20111026
  5. BENDROFLUMETHIAZIDE [Concomitant]
     Indication: FLUID RETENTION
     Route: 048
     Dates: start: 20111010
  6. LANSOPRAZOLE [Concomitant]
     Indication: GASTROOESOPHAGEAL REFLUX DISEASE
     Route: 048

REACTIONS (4)
  - PULMONARY FIBROSIS [None]
  - ACUTE CORONARY SYNDROME [None]
  - PULMONARY HYPERTENSION [None]
  - CHRONIC OBSTRUCTIVE PULMONARY DISEASE [None]
